FAERS Safety Report 5630069-8 (Version None)
Quarter: 2008Q1

REPORT INFORMATION
  Report Type: 
  Country: None (occurrence: None)
  Receive Date: 20080218
  Receipt Date: 20080206
  Transmission Date: 20080703
  Serious: Yes (Life-Threatening, Other)
  Sender: FDA-Public Use
  Company Number: PHHY2008CA01398

PATIENT
  Age: 27 Year
  Sex: Male
  Weight: 62.585 kg

DRUGS (7)
  1. OLANZAPINE [Concomitant]
     Dosage: 15 MG
     Route: 048
     Dates: start: 20070801
  2. CLONAZEPAM [Concomitant]
     Dosage: 1 MG
     Dates: start: 20070901
  3. CLOZARIL [Suspect]
     Indication: SCHIZOPHRENIA
     Dosage: TEST DOSE OF 12.5 MG
     Route: 048
     Dates: start: 20080205, end: 20080205
  4. QUETIAPINE FUMARATE [Concomitant]
     Dosage: 1000 MG
  5. QUETIAPINE FUMARATE [Concomitant]
     Dosage: 900 MG
  6. VENLAFAXINE HCL [Concomitant]
     Dosage: 75 MG
     Dates: start: 20070701
  7. DOCUSATE SODIUM [Concomitant]
     Dosage: 100 MG

REACTIONS (6)
  - ASTHENIA [None]
  - BLOOD PRESSURE DECREASED [None]
  - DIZZINESS [None]
  - HEART RATE DECREASED [None]
  - PRESYNCOPE [None]
  - SHOCK [None]
